FAERS Safety Report 4947991-8 (Version None)
Quarter: 2006Q1

REPORT INFORMATION
  Report Type: 
  Country: None (occurrence: None)
  Receive Date: 20060320
  Receipt Date: 20051006
  Transmission Date: 20060701
  Serious: Yes (Hospitalization, Other)
  Sender: FDA-Public Use
  Company Number: US-MERCK-0510USA06387

PATIENT
  Age: 77 Year
  Sex: Female

DRUGS (1)
  1. VIOXX [Suspect]
     Route: 048

REACTIONS (13)
  - CALCULUS URETERIC [None]
  - CEREBRAL ATROPHY [None]
  - CEREBRAL INFARCTION [None]
  - ENCEPHALOMALACIA [None]
  - HAEMATOMA [None]
  - HYPERLIPIDAEMIA [None]
  - HYPERTENSION [None]
  - ISCHAEMIC STROKE [None]
  - MICROANGIOPATHY [None]
  - PERIPHERAL VASCULAR DISORDER [None]
  - SUBCUTANEOUS HAEMATOMA [None]
  - VASCULAR DEMENTIA [None]
  - WEIGHT DECREASED [None]
